FAERS Safety Report 10046798 (Version 2)
Quarter: 2014Q2

REPORT INFORMATION
  Report Type: Spontaneous
  Country: US (occurrence: US)
  Receive Date: 20140331
  Receipt Date: 20140424
  Transmission Date: 20141212
  Serious: Yes (Other)
  Sender: FDA-Public Use
  Company Number: US-AMGEN-USASP2014021244

PATIENT
  Age: 67 Year
  Sex: Female

DRUGS (23)
  1. PROLIA [Suspect]
     Indication: OSTEOPOROSIS POSTMENOPAUSAL
     Dosage: UNK
     Route: 065
     Dates: start: 201402
  2. POTASSIUM [Concomitant]
  3. HYDROCHLOROTHIAZIDE [Concomitant]
  4. CALCIUM [Concomitant]
  5. EFFEXOR [Concomitant]
  6. GABAPENTIN [Concomitant]
  7. TRICOR                             /00090101/ [Concomitant]
  8. SYNTHROID [Concomitant]
  9. CRESTOR [Concomitant]
  10. LORAZEPAM [Concomitant]
     Dosage: UNK UNK, AS NECESSARY
  11. ROBAXIN [Concomitant]
     Indication: MUSCLE SPASMS
     Dosage: 750 MG, UNK
  12. ALBUTEROL                          /00139501/ [Concomitant]
  13. ADVAIR [Concomitant]
  14. ATROVENT [Concomitant]
  15. TRAZODONE [Concomitant]
  16. FISH OIL [Concomitant]
  17. VITAMIN D3 [Concomitant]
  18. MELATONIN [Concomitant]
  19. TYLENOL                            /00020001/ [Concomitant]
     Dosage: 650 MG, UNK
  20. LIDODERM [Concomitant]
     Indication: PAIN
  21. LIDODERM [Concomitant]
     Indication: HYPOTONIA
  22. VITAMIN B12                        /00056201/ [Concomitant]
  23. GLUCOSAMINE [Concomitant]

REACTIONS (1)
  - Cataract [Unknown]
